FAERS Safety Report 4397057-3 (Version None)
Quarter: 2004Q3

REPORT INFORMATION
  Report Type: 
  Country: None (occurrence: None)
  Receive Date: 20040708
  Receipt Date: 20040623
  Transmission Date: 20050211
  Serious: Yes (Hospitalization)
  Sender: FDA-Public Use
  Company Number: FABR-10317

PATIENT
  Age: 56 Year
  Sex: Male
  Weight: 69 kg

DRUGS (5)
  1. FABRAZYME [Suspect]
     Indication: FABRY'S DISEASE
     Dosage: 1 MG/KG Q2WKS IV
     Route: 042
     Dates: start: 20021205
  2. AMIODARONE HCL [Concomitant]
  3. WARFARIN SODIUM [Concomitant]
  4. METOPROLOL [Concomitant]
  5. RAMIPRIL [Concomitant]

REACTIONS (4)
  - ATRIAL FIBRILLATION [None]
  - BRADYCARDIA [None]
  - FATIGUE [None]
  - SYNCOPE [None]
